FAERS Safety Report 5672011-X (Version None)
Quarter: 2008Q2

REPORT INFORMATION
  Report Type: 
  Country: None (occurrence: None)
  Receive Date: 20080219
  Receipt Date: 20080107
  Transmission Date: 20081010
  Serious: No
  Sender: FDA-Public Use
  Company Number: TPA2007A02538

PATIENT
  Age: 45 Year
  Sex: Female
  Weight: 54.4316 kg

DRUGS (8)
  1. ROZEREM [Suspect]
     Indication: INSOMNIA
     Dosage: 8 MG, QHS, PER ORAL ; 8 MG, QHS, ON AND OFF, PER ORAL
     Route: 048
     Dates: start: 20071204, end: 20071201
  2. ROZEREM [Suspect]
     Indication: POOR QUALITY SLEEP
     Dosage: 8 MG, QHS, PER ORAL ; 8 MG, QHS, ON AND OFF, PER ORAL
     Route: 048
     Dates: start: 20071204, end: 20071201
  3. ROZEREM [Suspect]
     Indication: INSOMNIA
     Dosage: 8 MG, QHS, PER ORAL ; 8 MG, QHS, ON AND OFF, PER ORAL
     Route: 048
     Dates: start: 20071201, end: 20071218
  4. ROZEREM [Suspect]
     Indication: POOR QUALITY SLEEP
     Dosage: 8 MG, QHS, PER ORAL ; 8 MG, QHS, ON AND OFF, PER ORAL
     Route: 048
     Dates: start: 20071201, end: 20071218
  5. UNKNOWN ANTISPASMOTIC [Concomitant]
  6. LISINOPRIL [Concomitant]
  7. TOPROL-XL [Concomitant]
  8. ZOLOFT [Concomitant]

REACTIONS (3)
  - ABNORMAL DREAMS [None]
  - LIBIDO INCREASED [None]
  - MIDDLE INSOMNIA [None]
